FAERS Safety Report 18647860 (Version 1)
Quarter: 2020Q4

REPORT INFORMATION
  Report Type: Spontaneous
  Country: US (occurrence: US)
  Receive Date: 20201221
  Receipt Date: 20201221
  Transmission Date: 20210114
  Serious: Yes (Other)
  Sender: FDA-Public Use
  Company Number: None

PATIENT
  Age: 71 Year
  Sex: Female
  Weight: 63.4 kg

DRUGS (8)
  1. ENOXAPARIN (LOVENOX) 60 MG/0.6 ML INJECTION SYRINGE [Concomitant]
  2. CETIRIZINE (ZYRTEC) 10 MG TABLET [Concomitant]
  3. YESCARTA [Suspect]
     Active Substance: AXICABTAGENE CILOLEUCEL
     Indication: DIFFUSE LARGE B-CELL LYMPHOMA
     Dosage: ?          OTHER FREQUENCY:ONCE;?
     Route: 042
     Dates: start: 20201116, end: 20201116
  4. CALCIUM CARBONATE-VITAMIN D3 [Concomitant]
  5. VALACYCLOVIR (VALTREX) 500 MG TABLET [Concomitant]
  6. CHOLECALCIFEROL (VITAMIN D3) 2,000 UNIT CAPSULE [Concomitant]
  7. FLUTICASONE PROPIONATE (FLONASE) 50 MCG/ACTUATION NASAL SPRAY [Concomitant]
  8. LEVOTHYROXINE (SYNTHROID) 75 MCG TABLET [Concomitant]

REACTIONS (10)
  - Dyspnoea [None]
  - Cytokine release syndrome [None]
  - Chest discomfort [None]
  - Cough [None]
  - Tremor [None]
  - Chills [None]
  - Neurotoxicity [None]
  - Acute kidney injury [None]
  - Seizure [None]
  - Tachycardia [None]

NARRATIVE: CASE EVENT DATE: 20201123
